FAERS Safety Report 5575900-X (Version None)
Quarter: 2007Q4

REPORT INFORMATION
  Report Type: 
  Country: None (occurrence: None)
  Receive Date: 20071228
  Receipt Date: 20071226
  Transmission Date: 20080405
  Serious: Yes (Other)
  Sender: FDA-Public Use
  Company Number: FR-BRISTOL-MYERS SQUIBB COMPANY-14008114

PATIENT
  Age: 40 Year
  Sex: Male

DRUGS (3)
  1. PRAVASTATIN [Suspect]
     Indication: HYPERCHOLESTEROLAEMIA
     Dosage: DISCONTINUED ON 02-NOV-2007 BUT REINTRODUCED LATER AND IS ONGOING
     Route: 048
     Dates: start: 20061001
  2. ISOPTINE LP [Concomitant]
     Indication: ESSENTIAL HYPERTENSION
     Route: 048
     Dates: start: 20001101
  3. BENAZEPRIL HCL [Concomitant]
     Indication: ESSENTIAL HYPERTENSION
     Route: 048
     Dates: start: 20001101

REACTIONS (2)
  - MUSCLE RUPTURE [None]
  - MUSCLE SPASMS [None]
